FAERS Safety Report 7373733-5 (Version None)
Quarter: 2011Q1

REPORT INFORMATION
  Report Type: 
  Country: None (occurrence: None)
  Receive Date: 20110314
  Receipt Date: 20110307
  Transmission Date: 20110831
  Serious: Yes (Hospitalization)
  Sender: FDA-Public Use
  Company Number: 2011SP010577

PATIENT
  Age: 26 Year
  Sex: Female

DRUGS (1)
  1. PREGNYL [Suspect]
     Indication: PRODUCT USED FOR UNKNOWN INDICATION
     Dosage: IU

REACTIONS (2)
  - HYPERSENSITIVITY [None]
  - SHOCK [None]
